FAERS Safety Report 5252941-3 (Version None)
Quarter: 2007Q1

REPORT INFORMATION
  Report Type: 
  Country: None (occurrence: None)
  Receive Date: 20070227
  Receipt Date: 20070215
  Transmission Date: 20070707
  Serious: Yes (Other)
  Sender: FDA-Public Use
  Company Number: GRP07000016

PATIENT
  Age: 78 Year
  Sex: Female
  Weight: 59 kg

DRUGS (16)
  1. ACTONEL [Suspect]
     Indication: OSTEOPOROSIS
     Dosage: 35 MG, 1/WEEK, ORAL
     Route: 048
     Dates: start: 20041126, end: 20051212
  2. MARCUMAR [Concomitant]
  3. VALORON /00205402/ (TILIDINE HYDROCHLORIDE) [Concomitant]
  4. LORZAAR (LOSARTAN POTASSIUM) [Concomitant]
  5. TOREM /01036501/ (TORASEMIDE) [Concomitant]
  6. METOPROLOL SUCCINATE [Concomitant]
  7. METOPROLOL RATIOPHARM COMP. (METOPROLOL TARTRATE, HYDROCHLOROTHIAZIDE) [Concomitant]
  8. NOVODIGAL /00545901/ (BETA-ACETYLDIGOXIN) [Concomitant]
  9. LORZAAR PLUS (HYDROCHLOROTHIAZIDE, LOSARTAN POTASSIUM) [Concomitant]
  10. MARCUPHEN (PHENPROCOUMON) [Concomitant]
  11. FUROSEMID RATIOPHARM (FUROSEMIDE) [Concomitant]
  12. ARELIX /00630801/ (PIRETANIDE) [Concomitant]
  13. LORZAAR (LOSARTAN POTASSIUM) [Concomitant]
  14. CALCIUM-D3 (COLECALCIFEROL, CALCIUM CARBONATE) [Concomitant]
  15. TILIDIN (TILIDINE HYDROCHLORIDE, NALOXONE HYDROCHLORIDE) [Concomitant]
  16. TETANUS VACCINE (TETANUS VACCINE) [Concomitant]

REACTIONS (6)
  - ALANINE AMINOTRANSFERASE INCREASED [None]
  - BLOOD ALKALINE PHOSPHATASE INCREASED [None]
  - BLOOD CREATININE INCREASED [None]
  - BLOOD LACTATE DEHYDROGENASE INCREASED [None]
  - GAMMA-GLUTAMYLTRANSFERASE INCREASED [None]
  - PANCREATITIS ACUTE [None]
